FAERS Safety Report 23970636 (Version 2)
Quarter: 2024Q3

REPORT INFORMATION
  Report Type: Spontaneous
  Country: US (occurrence: US)
  Receive Date: 20240613
  Receipt Date: 20240805
  Transmission Date: 20241017
  Serious: No
  Sender: BAXTER
  Company Number: US-BAXTER-2024BAX019188

PATIENT

DRUGS (1)
  1. VANCOMYCIN [Suspect]
     Active Substance: VANCOMYCIN
     Dosage: PUMP, 250 CC BAG MEASURED 125 CC
     Route: 042

REACTIONS (2)
  - Drug level decreased [Unknown]
  - Product dose omission issue [Unknown]

NARRATIVE: CASE EVENT DATE: 20240425
